FAERS Safety Report 4276000-1 (Version None)
Quarter: 2004Q1

REPORT INFORMATION
  Report Type: 
  Country: None (occurrence: None)
  Receive Date: 20040121
  Receipt Date: 20030613
  Transmission Date: 20041129
  Serious: No
  Sender: FDA-Public Use
  Company Number: US-GLAXOSMITHKLINE-A0412419A

PATIENT
  Age: 6 Year
  Sex: Male

DRUGS (5)
  1. ZIAGEN [Suspect]
     Indication: HIV INFECTION
     Dosage: 8.4ML TWICE PER DAY
     Route: 048
     Dates: start: 20030227
  2. ZERIT [Concomitant]
  3. KALETRA [Concomitant]
  4. BACTRIM [Concomitant]
  5. ZYRTEC [Concomitant]

REACTIONS (1)
  - PSYCHOMOTOR HYPERACTIVITY [None]
